FAERS Safety Report 6619007-9 (Version None)
Quarter: 2010Q1

REPORT INFORMATION
  Report Type: 
  Country: None (occurrence: None)
  Receive Date: 20100308
  Receipt Date: 20100204
  Transmission Date: 20100710
  Serious: No
  Sender: FDA-Public Use
  Company Number: US-BAYER-201011656BCC

PATIENT
  Age: 29 Year
  Sex: Female
  Weight: 77 kg

DRUGS (1)
  1. ALEVE (CAPLET) [Suspect]
     Indication: PAIN
     Dosage: TOTAL DAILY DOSE: 880 MG  UNIT DOSE: 220 MG
     Route: 048
     Dates: start: 20100204

REACTIONS (4)
  - ANXIETY [None]
  - HEART RATE INCREASED [None]
  - NERVOUSNESS [None]
  - PAIN [None]
